FAERS Safety Report 8210986-5 (Version None)
Quarter: 2012Q1

REPORT INFORMATION
  Report Type: 
  Country: None (occurrence: None)
  Receive Date: 20120229
  Receipt Date: 20120228
  Transmission Date: 20120608
  Serious: Yes (Other)
  Sender: FDA-Public Use
  Company Number: CPI-2527

PATIENT
  Age: 59 Year
  Sex: Female
  Weight: 83.4619 kg

DRUGS (3)
  1. ACETADOTE [Suspect]
     Indication: OVERDOSE
     Dosage: 150 MG/KG 30M; 12.5 FOR 4HR, 100 MG FOR 2H (VS 16H)
     Dates: start: 20110809
  2. VICODIN [Concomitant]
  3. TYLENOL [Concomitant]

REACTIONS (1)
  - MEDICATION ERROR [None]
